FAERS Safety Report 5252836-5 (Version None)
Quarter: 2007Q1

REPORT INFORMATION
  Report Type: 
  Country: None (occurrence: None)
  Receive Date: 20070301
  Receipt Date: 20070223
  Transmission Date: 20070707
  Serious: Yes (Other)
  Sender: FDA-Public Use
  Company Number: GB-JNJFOC-20060604928

PATIENT
  Sex: Male

DRUGS (2)
  1. REMICADE [Suspect]
     Route: 042
  2. REMICADE [Suspect]
     Indication: DRUG USE FOR UNKNOWN INDICATION
     Route: 042

REACTIONS (7)
  - ANKYLOSING SPONDYLITIS [None]
  - DIARRHOEA [None]
  - DYSPHAGIA [None]
  - OVERGROWTH BACTERIAL [None]
  - PARESIS CRANIAL NERVE [None]
  - PYREXIA [None]
  - SECONDARY AMYLOIDOSIS [None]
